FAERS Safety Report 8765477 (Version 1)
Quarter: 2012Q4

REPORT INFORMATION
  Report Type: 
  Country: NL (occurrence: NL)
  Receive Date: 20120903
  Receipt Date: 20120903
  Transmission Date: 20130627
  Serious: Yes (Hospitalization)
  Sender: FDA-Public Use
  Company Number: NL-PFIZER INC-2012211064

PATIENT
  Age: 45 Year
  Sex: Male
  Weight: 86.5 kg

DRUGS (18)
  1. GENOTROPIN [Suspect]
     Indication: GROWTH HORMONE DEFICIENCY
     Dosage: 0.6 mg, 7injection week
     Route: 058
     Dates: start: 20030319
  2. DESMOPRESSIN [Concomitant]
     Indication: BLOOD ANTIDIURETIC HORMONE DECREASED
     Dosage: UNK
     Dates: start: 19810101
  3. TESTOSTERONE [Concomitant]
     Indication: BLOOD LUTEINISING HORMONE DECREASED
     Dosage: UNK
     Dates: start: 19850101
  4. TESTOSTERONE [Concomitant]
     Indication: BLOOD FOLLICLE STIMULATING HORMONE DECREASED
  5. TESTOSTERONE [Concomitant]
     Indication: HYPOGONADISM MALE
  6. CHORIONIC GONADOTROPHIN [Concomitant]
     Indication: INFERTILITY MALE
     Dosage: UNK
     Dates: start: 19991106
  7. PHENYTOIN [Concomitant]
     Indication: EPILEPSY
     Dosage: UNK
     Dates: start: 19880101
  8. PHENYTOIN [Concomitant]
     Indication: CONVULSION
  9. PHENYTOIN [Concomitant]
     Indication: CONVULSION
  10. GABAPENTIN [Concomitant]
     Indication: EPILEPSY
     Dosage: UNK
     Dates: start: 20000915
  11. GABAPENTIN [Concomitant]
     Indication: CONVULSION
  12. GABAPENTIN [Concomitant]
     Indication: CONVULSION
  13. CORTISONE ACETATE [Concomitant]
     Indication: BLOOD CORTICOTROPHIN DECREASED
     Dosage: UNK
     Dates: start: 19810101
  14. LEVOTHYROXINE SODIUM [Concomitant]
     Indication: BLOOD THYROID STIMULATING HORMONE DECREASED
     Dosage: UNK
     Dates: start: 20020625
  15. LEVOTHYROXINE SODIUM [Concomitant]
     Indication: PRIMARY HYPOTHYROIDISM
  16. TOPIRAMATE [Concomitant]
     Indication: EPILEPSY
     Dosage: UNK
     Dates: start: 20030822
  17. TOPIRAMATE [Concomitant]
     Indication: CONVULSION
  18. TOPIRAMATE [Concomitant]
     Indication: CONVULSION

REACTIONS (1)
  - Epilepsy [Unknown]
